FAERS Safety Report 13673130 (Version 1)
Quarter: 2017Q2

REPORT INFORMATION
  Report Type: Spontaneous
  Country: GB (occurrence: GB)
  Receive Date: 20170621
  Receipt Date: 20170621
  Transmission Date: 20170830
  Serious: Yes (Other)
  Sender: FDA-Public Use
  Company Number: GB-MYLANLABS-2017M1036862

PATIENT

DRUGS (1)
  1. VALPROIC ACID. [Suspect]
     Active Substance: VALPROIC ACID
     Indication: PRODUCT USED FOR UNKNOWN INDICATION
     Route: 065

REACTIONS (7)
  - Pancreatitis acute [Unknown]
  - Tremor [Unknown]
  - Blood pressure increased [Unknown]
  - Movement disorder [Unknown]
  - Gait disturbance [Unknown]
  - Balance disorder [Unknown]
  - Tachycardia [Unknown]
